FAERS Safety Report 6255453-3 (Version None)
Quarter: 2009Q3

REPORT INFORMATION
  Report Type: 
  Country: None (occurrence: None)
  Receive Date: 20090702
  Receipt Date: 20090629
  Transmission Date: 20100115
  Serious: Yes (Death, Other)
  Sender: FDA-Public Use
  Company Number: US-B.I. PHARMACEUTICALS,INC./RIDGEFIELD-2009-RO-00618RO

PATIENT
  Age: 50 Year
  Sex: Female

DRUGS (14)
  1. AMLODIPINE [Suspect]
     Indication: HYPERTENSION
     Dosage: 10 MG
  2. NICARDIPINE HYDROCHLORIDE [Suspect]
     Indication: HYPERTENSION
  3. PROPOFOL [Suspect]
     Indication: SEDATION
  4. FENTANYL-100 [Suspect]
     Indication: SEDATION
  5. FOSPHENYTOIN [Suspect]
     Indication: CONVULSION
     Dosage: 300 MG
     Route: 042
  6. FAMOTIDINE [Suspect]
     Indication: STRESS ULCER
     Dosage: 40 MG
     Route: 042
  7. VANCOMYCIN [Suspect]
     Indication: PYREXIA
  8. LOSARTAN POTASSIUM [Suspect]
     Indication: BLOOD PRESSURE MANAGEMENT
     Dosage: 50 MG
     Route: 048
  9. DIPHENHYDRAMINE HCL [Suspect]
     Indication: SWELLING
     Dosage: 100 MG
     Route: 048
  10. HYDROCORTISONE [Suspect]
     Indication: SWELLING
     Dosage: 300 MG
     Route: 042
  11. RANITIDINE [Suspect]
     Indication: SWELLING
     Dosage: 300 MG
     Route: 048
  12. ATROPINE [Concomitant]
     Indication: RESUSCITATION
  13. EPINEPHRINE [Concomitant]
     Indication: RESUSCITATION
  14. LABETALOL HCL [Concomitant]
     Indication: HYPERTENSIVE EMERGENCY

REACTIONS (6)
  - ANGIOEDEMA [None]
  - CARDIAC ARREST [None]
  - CONVULSION [None]
  - PYREXIA [None]
  - RESPIRATORY DISTRESS [None]
  - TACHYCARDIA [None]
